FAERS Safety Report 10909647 (Version 1)
Quarter: 2015Q1

REPORT INFORMATION
  Report Type: Spontaneous
  Country: US (occurrence: US)
  Receive Date: 20150312
  Receipt Date: 20150312
  Transmission Date: 20150721
  Serious: Yes (Other)
  Sender: FDA-Public Use
  Company Number: US-SA-2014SA068766

PATIENT
  Age: 68 Year
  Sex: Male

DRUGS (1)
  1. NASACORT ALLERGY 24HR [Suspect]
     Active Substance: TRIAMCINOLONE ACETONIDE
     Indication: MULTIPLE ALLERGIES
     Dosage: TAKEN FROM-2 DAYS AGO, DOSE- 2 SPRAY IN EACH NOSTRIL
     Route: 045

REACTIONS (3)
  - Cataract [Unknown]
  - Vision blurred [Unknown]
  - Visual acuity reduced [Unknown]
